FAERS Safety Report 5738640-X (Version None)
Quarter: 2008Q2

REPORT INFORMATION
  Report Type: 
  Country: None (occurrence: None)
  Receive Date: 20080515
  Receipt Date: 20080506
  Transmission Date: 20081010
  Serious: Yes (Hospitalization, Other)
  Sender: FDA-Public Use
  Company Number: PHHO2008DE04906

PATIENT
  Age: 55 Year
  Sex: Male
  Weight: 120 kg

DRUGS (6)
  1. MYCOPHENOLATE MOFETIL [Suspect]
     Indication: HEART TRANSPLANT
     Dosage: 0.75 MG, BID
     Route: 048
     Dates: start: 20080411
  2. MYCOPHENOLATE MOFETIL [Suspect]
     Dosage: 0.5 MG, BID
     Route: 048
     Dates: start: 20080411, end: 20080502
  3. CYCLOSPORINE [Suspect]
     Indication: HEART TRANSPLANT
     Dosage: 80 ML, BID
     Route: 042
     Dates: start: 20080409
  4. CYCLOSPORINE [Suspect]
     Dosage: 300 MG, BID
     Route: 048
     Dates: start: 20080409
  5. FLUVASTATIN [Suspect]
     Dosage: 20 MG, QD
     Route: 048
     Dates: start: 20080411, end: 20080415
  6. PREDNISOLONE [Concomitant]
     Indication: HEART TRANSPLANT
     Dosage: 90 MG, QD
     Route: 048
     Dates: start: 20080414

REACTIONS (6)
  - BLOOD CREATINE PHOSPHOKINASE INCREASED [None]
  - RHABDOMYOLYSIS [None]
  - TRACHEOSTOMY [None]
  - WEANING FAILURE [None]
  - WOUND CLOSURE [None]
  - WOUND DEHISCENCE [None]
